FAERS Safety Report 8393745 (Version 5)
Quarter: 2012Q4

REPORT INFORMATION
  Report Type: Report from Study
  Country: CA (occurrence: CA)
  Receive Date: 20120207
  Receipt Date: 20121213
  Transmission Date: 20130627
  Serious: Yes (Hospitalization)
  Sender: FDA-Public Use
  Company Number: CA-ROCHE-1033925

PATIENT
  Age: 65 None
  Sex: Female
  Weight: 63.56 kg

DRUGS (43)
  1. RITUXIMAB [Suspect]
     Indication: SJOGREN^S SYNDROME
     Dosage: day 1 and 15
     Route: 042
     Dates: start: 20100209
  2. RITUXIMAB [Suspect]
     Dosage: day 1 and 15
     Route: 042
     Dates: start: 20110929
  3. RITUXIMAB [Suspect]
     Route: 042
     Dates: start: 20120503
  4. ACIDOPHILUS [Concomitant]
  5. PREDNISONE [Concomitant]
     Indication: PREMEDICATION
     Route: 048
     Dates: start: 20111004, end: 20111004
  6. PREDNISONE [Concomitant]
     Indication: IMMUNOSUPPRESSION
     Route: 048
  7. NORTRIPTYLINE [Concomitant]
     Indication: PAIN
     Route: 048
  8. HYDROMORPH CONTIN [Concomitant]
     Indication: PAIN
     Dosage: 1-2 mg
     Route: 065
  9. MELATONIN [Concomitant]
  10. LYRICA [Concomitant]
     Indication: PAIN
  11. BACLOFEN [Concomitant]
  12. LORAZEPAM [Concomitant]
  13. RANITIDINE [Concomitant]
  14. POTASSIUM CHLORIDE [Concomitant]
     Route: 048
  15. LASIX [Concomitant]
  16. MULTIVITAMINS [Concomitant]
  17. DIPHENHYDRAMINE HCL [Concomitant]
     Indication: PREMEDICATION
     Dosage: ONCE
     Route: 048
     Dates: start: 20111004, end: 20111004
  18. ACETAMINOFEN [Concomitant]
     Indication: PREMEDICATION
     Dosage: once
     Route: 065
     Dates: start: 20111004, end: 20111004
  19. ALENDRONATE [Concomitant]
     Route: 048
  20. CHLORIDE [Concomitant]
  21. B12 COMPLEX [Concomitant]
  22. OMEGA 3 [Concomitant]
  23. FOLIC ACID [Concomitant]
     Route: 048
  24. CALCIUM [Concomitant]
  25. NASONEX [Concomitant]
  26. VITAMIN C [Concomitant]
  27. MAGNESIUM [Concomitant]
  28. PREGABALIN [Concomitant]
     Indication: PAIN
     Route: 048
  29. PREGABALIN [Concomitant]
     Route: 048
  30. METHADONE [Concomitant]
     Indication: PAIN
     Route: 048
  31. METHOTREXATE [Concomitant]
     Indication: IMMUNOSUPPRESSION
     Route: 030
  32. WARFARIN [Concomitant]
     Route: 048
  33. AMLODIPIN [Concomitant]
     Route: 048
  34. NEXIUM [Concomitant]
     Route: 048
  35. TIZANIDINE [Concomitant]
     Indication: HYPOTONIA
     Route: 048
  36. CLONAZEPAM [Concomitant]
     Route: 048
  37. FERROUS FUMARATE [Concomitant]
     Route: 048
  38. FUROSEMIDE [Concomitant]
     Route: 048
  39. TYLENOL [Concomitant]
     Indication: ARTHRITIS
  40. TYLENOL [Concomitant]
     Indication: MYALGIA
  41. DESLORATADINE [Concomitant]
  42. SENNOSIDE [Concomitant]
  43. DOCUSATE SODIUM [Concomitant]

REACTIONS (8)
  - Pneumonia aspiration [Recovered/Resolved]
  - Pneumonia [Recovered/Resolved]
  - Hip arthroplasty [Recovered/Resolved]
  - Bronchitis [Recovered/Resolved]
  - Cystitis haemorrhagic [Recovering/Resolving]
  - Cystitis [Recovered/Resolved]
  - Urinary bladder haemorrhage [Recovered/Resolved]
  - Hernia hiatus repair [Recovered/Resolved]
